FAERS Safety Report 10070441 (Version 2)
Quarter: 2014Q2

REPORT INFORMATION
  Report Type: Spontaneous
  Country: JP (occurrence: JP)
  Receive Date: 20140410
  Receipt Date: 20140603
  Transmission Date: 20141212
  Serious: Yes (Hospitalization, Other)
  Sender: FDA-Public Use
  Company Number: JP-009507513-1404JPN005881

PATIENT
  Age: 80 Year
  Sex: Female

DRUGS (7)
  1. TOREMIFENE CITRATE [Suspect]
     Indication: BREAST CANCER
     Dosage: 40 MG, QD
     Route: 048
     Dates: start: 2002
  2. TEPRENONE [Concomitant]
     Dosage: 150 MG, QD
     Route: 048
  3. CRESTOR [Concomitant]
     Dosage: 5 MG, QD
     Route: 048
  4. ADETPHOS [Concomitant]
     Dosage: 3 G, QD
     Route: 048
  5. MAGLAX (MAGNESIUM OXIDE) [Concomitant]
     Dosage: 660 MG, QD
     Route: 048
  6. UBIRON [Concomitant]
     Dosage: 300 MG, QD
     Route: 048
  7. MOSAPRIDE CITRATE [Concomitant]
     Dosage: 15 MG, QD
     Route: 048

REACTIONS (1)
  - Uterine cancer [Unknown]
